APPROVED DRUG PRODUCT: AZSTARYS
Active Ingredient: DEXMETHYLPHENIDATE HYDROCHLORIDE; SERDEXMETHYLPHENIDATE CHLORIDE
Strength: EQ 10.4MG BASE;EQ 52.3MG BASE
Dosage Form/Route: CAPSULE;ORAL
Application: N212994 | Product #003
Applicant: COMMAVE THERAPEUTICS SA
Approved: May 7, 2021 | RLD: Yes | RS: Yes | Type: RX

PATENTS:
Patent 10954213 | Expires: Dec 9, 2037
Patent 10858341 | Expires: Dec 9, 2037
Patent 9079928 | Expires: Jul 27, 2032
Patent 10759778 | Expires: Dec 9, 2037
Patent 10584113 | Expires: Dec 9, 2037
Patent 10584112 | Expires: Dec 9, 2037

EXCLUSIVITY:
Code: NCE | Date: May 7, 2026